FAERS Safety Report 4535851-6 (Version None)
Quarter: 2004Q4

REPORT INFORMATION
  Report Type: 
  Country: None (occurrence: None)
  Receive Date: 20041223
  Receipt Date: 20040426
  Transmission Date: 20050328
  Serious: No
  Sender: FDA-Public Use
  Company Number: US-GLAXOSMITHKLINE-A0508434A

PATIENT
  Sex: Female

DRUGS (15)
  1. FLONASE [Suspect]
     Dosage: 2SPR TWICE PER DAY
     Route: 045
     Dates: start: 20030927, end: 20040401
  2. NORVASC [Concomitant]
  3. ACCUPRIL [Concomitant]
  4. PLAVIX [Concomitant]
  5. PREMARIN [Concomitant]
  6. NEURONTIN [Concomitant]
  7. IBUPROFEN [Concomitant]
  8. RANITIDINE [Concomitant]
  9. LORAZEPAM [Concomitant]
  10. PROZAC [Concomitant]
  11. PREVACID [Concomitant]
  12. ACTONEL [Concomitant]
  13. DIFLUCAN [Concomitant]
  14. URIMAX [Concomitant]
  15. DARVOCET [Concomitant]

REACTIONS (1)
  - DRUG INEFFECTIVE [None]
